FAERS Safety Report 6839926-8 (Version None)
Quarter: 2010Q2

REPORT INFORMATION
  Report Type: 
  Country: None (occurrence: None)
  Receive Date: 20100629
  Receipt Date: 20100315
  Transmission Date: 20101027
  Serious: Yes (Other)
  Sender: FDA-Public Use
  Company Number: US-WYE-H14155510

PATIENT
  Age: 36 Year
  Sex: Female
  Weight: 124.85 kg

DRUGS (1)
  1. PRISTIQ [Suspect]
     Dosage: 50 MG 1X PER 1 DAY, ORAL
     Route: 048
     Dates: start: 20100223, end: 20100305

REACTIONS (1)
  - OEDEMA PERIPHERAL [None]
